FAERS Safety Report 6308094-3 (Version None)
Quarter: 2009Q3

REPORT INFORMATION
  Report Type: 
  Country: None (occurrence: None)
  Receive Date: 20090813
  Receipt Date: 20090805
  Transmission Date: 20100115
  Serious: Yes (Hospitalization, Other)
  Sender: FDA-Public Use
  Company Number: US-AMGEN-QUU358867

PATIENT
  Sex: Female

DRUGS (2)
  1. ENBREL [Suspect]
     Indication: RHEUMATOID ARTHRITIS
     Route: 058
  2. METHOTREXATE [Concomitant]

REACTIONS (5)
  - ARTHRALGIA [None]
  - FALL [None]
  - JOINT SWELLING [None]
  - RED BLOOD CELL COUNT DECREASED [None]
  - UPPER LIMB FRACTURE [None]
